FAERS Safety Report 22996267 (Version 2)
Quarter: 2023Q4

REPORT INFORMATION
  Report Type: Report from Study
  Country: US (occurrence: US)
  Receive Date: 20230927
  Receipt Date: 20231027
  Transmission Date: 20240110
  Serious: Yes (Hospitalization)
  Sender: FDA-Public Use
  Company Number: US-ABBVIE-5425726

PATIENT
  Sex: Female

DRUGS (14)
  1. DUOPA [Suspect]
     Active Substance: CARBIDOPA\LEVODOPA
     Indication: Product used for unknown indication
     Dosage: FORM STRENGTH WAS 100 MILLILITER.?LAST ADMIN DATE: FEB 2021
     Route: 050
     Dates: start: 20210202
  2. DUOPA [Suspect]
     Active Substance: CARBIDOPA\LEVODOPA
     Route: 050
     Dates: start: 20210208
  3. DUOPA [Suspect]
     Active Substance: CARBIDOPA\LEVODOPA
     Dosage: FORM STRENGTH WAS 100 MILLILITER.
     Route: 050
  4. SINEMET [Concomitant]
     Active Substance: CARBIDOPA\LEVODOPA
     Indication: Product used for unknown indication
     Dosage: TIME INTERVAL: AS NECESSARY: 25-100 MILLIGRAM.
     Route: 048
  5. LOVASTATIN [Concomitant]
     Active Substance: LOVASTATIN
     Indication: Product used for unknown indication
     Dosage: FORM STRENGTH: 40MG
     Route: 048
  6. DONEPEZIL [Concomitant]
     Active Substance: DONEPEZIL
     Indication: Product used for unknown indication
     Dosage: FORM STRENGTH: 0MG
     Route: 048
  7. ASPIRIN [Concomitant]
     Active Substance: ASPIRIN
     Indication: Product used for unknown indication
     Dosage: FORM STRENGTH: 81 MG
     Route: 048
  8. AMLODIPINE [Concomitant]
     Active Substance: AMLODIPINE BESYLATE
     Indication: Product used for unknown indication
     Dosage: FORM STRENGTH: 5MG
     Route: 048
  9. VITAMIN D3 [Concomitant]
     Active Substance: CHOLECALCIFEROL
     Indication: Product used for unknown indication
     Dosage: VITAMIN D3 10MCG?1000UN DAILY
     Route: 048
  10. LOPRESSOR [Concomitant]
     Active Substance: METOPROLOL TARTRATE
     Indication: Product used for unknown indication
     Dosage: FORM STRENGTH: 50 MG
     Route: 048
  11. CALCIUM [Concomitant]
     Active Substance: CALCIUM
     Indication: Product used for unknown indication
     Dosage: CALCIUM 500(1250)
     Route: 048
  12. TYLENOL [Concomitant]
     Active Substance: ACETAMINOPHEN
     Indication: Product used for unknown indication
     Dosage: TIME INTERVAL: AS NECESSARY: TYLENOL EXTRA STRENGTH?1 DOSE AS NEEDED
     Route: 048
  13. RYTARY [Concomitant]
     Active Substance: CARBIDOPA\LEVODOPA
     Indication: Product used for unknown indication
     Dosage: TIME INTERVAL: 0.33333333 DAYS: 23.75-95 MILLIGRAM.
     Route: 048
  14. RYTARY [Concomitant]
     Active Substance: CARBIDOPA\LEVODOPA
     Indication: Product used for unknown indication
     Dosage: 36.25-145MG
     Route: 048

REACTIONS (5)
  - Gastric ischaemia [Unknown]
  - Constipation [Unknown]
  - Abdominal pain upper [Unknown]
  - Gastrointestinal pain [Unknown]
  - Device dislocation [Unknown]
